FAERS Safety Report 8560865-9 (Version None)
Quarter: 2012Q3

REPORT INFORMATION
  Report Type: 
  Country: None (occurrence: None)
  Receive Date: 20120727
  Receipt Date: 20120727
  Transmission Date: 20120928
  Serious: Yes (Hospitalization)
  Sender: FDA-Public Use
  Company Number: None

PATIENT
  Age: 83 Year
  Sex: Female
  Weight: 75 kg

DRUGS (11)
  1. REMERON [Concomitant]
  2. GLYCOLAX [Concomitant]
  3. ARICEPT [Suspect]
     Indication: DEMENTIA ALZHEIMER'S TYPE
     Dosage: 20MG DAILY PO CHRONIC W/RECENT INCREASE
     Route: 048
  4. VITAMIN B-12 [Concomitant]
  5. DULCOLAX [Concomitant]
  6. NITROFURANTOIN [Concomitant]
  7. CLONAZEPAM [Concomitant]
  8. TYLENOL [Concomitant]
  9. ERGOCALCIFEROL [Concomitant]
  10. ASPIRIN [Concomitant]
  11. DOCUSATE [Concomitant]

REACTIONS (3)
  - GASTRITIS [None]
  - BRADYCARDIA [None]
  - SYNCOPE [None]
